FAERS Safety Report 10476775 (Version 1)
Quarter: 2014Q3

REPORT INFORMATION
  Report Type: Spontaneous
  Country: US (occurrence: US)
  Receive Date: 20140925
  Receipt Date: 20140925
  Transmission Date: 20150326
  Serious: No
  Sender: FDA-Public Use
  Company Number: US-009507513-1409USA011778

PATIENT
  Sex: Female

DRUGS (1)
  1. NEXPLANON [Suspect]
     Active Substance: ETONOGESTREL
     Dosage: UNK
     Route: 059
     Dates: start: 201408, end: 2014

REACTIONS (4)
  - Discomfort [Unknown]
  - Implant site erythema [Unknown]
  - Implant site bruising [Unknown]
  - Implant site pain [Unknown]

NARRATIVE: CASE EVENT DATE: 2014
